FAERS Safety Report 9224949 (Version 1)
Quarter: 2013Q1

REPORT INFORMATION
  Report Type: Spontaneous
  Country: US (occurrence: None)
  Receive Date: 20120912
  Receipt Date: 20120912
  Transmission Date: 20140127
  Serious: No
  Sender: FDA-Public Use
  Company Number: 2012SP024499

PATIENT
  Age: 46 Year
  Sex: Male

DRUGS (3)
  1. VICTRELIS (200 MG) [Suspect]
     Indication: HEPATITIS C
     Route: 048
     Dates: start: 20120411
  2. RIBAVIRIN [Suspect]
     Indication: HEPATITIS C
  3. PEGINTRON [Suspect]
     Indication: HEPATITIS C

REACTIONS (4)
  - Hypoaesthesia oral [None]
  - Hypogeusia [None]
  - Glossodynia [None]
  - Tinnitus [None]
